FAERS Safety Report 18404345 (Version 1)
Quarter: 2020Q4

REPORT INFORMATION
  Report Type: Spontaneous
  Country: US (occurrence: US)
  Receive Date: 20201020
  Receipt Date: 20201020
  Transmission Date: 20210114
  Serious: Yes (Other)
  Sender: FDA-Public Use
  Company Number: None

PATIENT
  Sex: Male

DRUGS (5)
  1. XOLOFT [Concomitant]
  2. TOPROL XL [Concomitant]
     Active Substance: METOPROLOL SUCCINATE
  3. REPATHA [Suspect]
     Active Substance: EVOLOCUMAB
     Indication: TYPE V HYPERLIPIDAEMIA
     Dosage: ?          OTHER FREQUENCY:Q2WEEKS ;?
     Route: 058
     Dates: start: 20180202
  4. ASPIRIN. [Concomitant]
     Active Substance: ASPIRIN
  5. FLOMAX - PLAVIX [Concomitant]

REACTIONS (8)
  - Burning sensation [None]
  - Erythema [None]
  - Vision blurred [None]
  - Groin pain [None]
  - Myalgia [None]
  - Renal disorder [None]
  - Rash [None]
  - Back pain [None]
